FAERS Safety Report 10265354 (Version 1)
Quarter: 2014Q2

REPORT INFORMATION
  Report Type: Spontaneous
  Country: US (occurrence: US)
  Receive Date: 20140627
  Receipt Date: 20140627
  Transmission Date: 20141212
  Serious: No
  Sender: FDA-Public Use
  Company Number: US-GLAXOSMITHKLINE-A1069640A

PATIENT
  Sex: Female

DRUGS (2)
  1. MEKINIST [Suspect]
     Indication: METASTATIC MALIGNANT MELANOMA
     Route: 048
  2. TAFINLAR [Suspect]
     Indication: METASTATIC MALIGNANT MELANOMA
     Route: 048

REACTIONS (3)
  - Blood creatine phosphokinase increased [Not Recovered/Not Resolved]
  - Myalgia [Unknown]
  - Aspartate aminotransferase increased [Unknown]
